FAERS Safety Report 9399850 (Version 1)
Quarter: 2013Q3

REPORT INFORMATION
  Report Type: Spontaneous
  Country: DE (occurrence: None)
  Receive Date: 20130710
  Receipt Date: 20130710
  Transmission Date: 20140515
  Serious: Yes (Other)
  Sender: FDA-Public Use
  Company Number: 2013GMK005989

PATIENT
  Sex: Female
  Weight: 70 kg

DRUGS (4)
  1. TOPIRAMATE [Suspect]
     Indication: EPILEPSY
     Route: 048
     Dates: start: 20130228, end: 20130509
  2. EUTHYROX (LEVOTHYROXINE SODIUM)(TABLET)(LEVOTHYROXINE SODIUM) [Concomitant]
  3. UTROGEST (PROGESTERONE) [Concomitant]
  4. FOL PLUS [Concomitant]

REACTIONS (2)
  - Abortion missed [None]
  - Exposure during pregnancy [None]
